FAERS Safety Report 9973613 (Version 1)
Quarter: 2014Q1

REPORT INFORMATION
  Report Type: Report from Study
  Country: US (occurrence: US)
  Receive Date: 20140306
  Receipt Date: 20140306
  Transmission Date: 20141002
  Serious: Yes (Hospitalization)
  Sender: FDA-Public Use
  Company Number: PHEH2014US004501

PATIENT
  Age: 10 Year
  Sex: Male

DRUGS (2)
  1. TOBI [Suspect]
     Indication: RESPIRATORY FAILURE
     Dosage: 1 DF (300 MG/5 ML), BID FOR 28 DAYS
     Route: 055
     Dates: end: 201401
  2. TOBI [Suspect]
     Indication: MUSCULAR WEAKNESS

REACTIONS (1)
  - Hepatic haemorrhage [Recovered/Resolved]
